FAERS Safety Report 6611613-0 (Version None)
Quarter: 2010Q1

REPORT INFORMATION
  Report Type: 
  Country: None (occurrence: None)
  Receive Date: 20100218
  Receipt Date: 20100203
  Transmission Date: 20100710
  Serious: Yes (Hospitalization, Other)
  Sender: FDA-Public Use
  Company Number: AUR-APL-2010-00356

PATIENT
  Age: 18 Year
  Sex: Male

DRUGS (6)
  1. METFORMIN HCL [Suspect]
     Indication: WEIGHT CONTROL
     Dosage: 250MG, QD-BID
     Dates: start: 20080401, end: 20080405
  2. CLOZARIL [Suspect]
     Indication: SCHIZOPHRENIA
     Dosage: 350MG,BID, ORAL
     Route: 048
     Dates: start: 20071102, end: 20080514
  3. DOCUSATE 200MG [Concomitant]
  4. HYOSCINE 300MG [Concomitant]
  5. OLANZAPINE [Concomitant]
  6. SENNA 15MG [Concomitant]

REACTIONS (8)
  - DEHYDRATION [None]
  - DIARRHOEA [None]
  - DRUG INTERACTION [None]
  - GASTROENTERITIS VIRAL [None]
  - NAUSEA [None]
  - NEUTROPENIA [None]
  - PNEUMONIA [None]
  - VOMITING [None]
